FAERS Safety Report 8307893-6 (Version None)
Quarter: 2012Q2

REPORT INFORMATION
  Report Type: 
  Country: None (occurrence: None)
  Receive Date: 20120424
  Receipt Date: 20120419
  Transmission Date: 20120825
  Serious: No
  Sender: FDA-Public Use
  Company Number: US-PFIZER INC-2012092185

PATIENT

DRUGS (1)
  1. LEVOXYL [Suspect]
     Indication: CONGENITAL HYPOTHYROIDISM
     Dosage: 100 UG, UNK

REACTIONS (5)
  - THYROXINE ABNORMAL [None]
  - HYPOTHYROIDISM [None]
  - MALAISE [None]
  - FATIGUE [None]
  - TRI-IODOTHYRONINE ABNORMAL [None]
